FAERS Safety Report 11192368 (Version 2)
Quarter: 2015Q3

REPORT INFORMATION
  Report Type: Report from Study
  Country: JP (occurrence: JP)
  Receive Date: 20150616
  Receipt Date: 20150811
  Transmission Date: 20151125
  Serious: Yes (Other)
  Sender: FDA-Public Use
  Company Number: JP-JNJFOC-20150607651

PATIENT
  Age: 67 Year
  Sex: Male
  Weight: 77 kg

DRUGS (7)
  1. SOVRIAD [Suspect]
     Active Substance: SIMEPREVIR
     Indication: CHRONIC HEPATITIS C
     Route: 048
     Dates: start: 20150226, end: 20150501
  2. PEGASYS [Suspect]
     Active Substance: PEGINTERFERON ALFA-2A
     Indication: CHRONIC HEPATITIS C
     Route: 058
     Dates: start: 20150424, end: 20150424
  3. PEGASYS [Suspect]
     Active Substance: PEGINTERFERON ALFA-2A
     Indication: CHRONIC HEPATITIS C
     Route: 058
     Dates: start: 20150226, end: 20150417
  4. RIBAVIRIN. [Suspect]
     Active Substance: RIBAVIRIN
     Indication: CHRONIC HEPATITIS C
     Route: 048
     Dates: start: 20150226, end: 20150501
  5. BROTIZOLAM [Concomitant]
     Active Substance: BROTIZOLAM
     Indication: PROPHYLAXIS
     Route: 048
     Dates: start: 20150226, end: 20150501
  6. LOXOPROFEN [Concomitant]
     Active Substance: LOXOPROFEN
     Indication: HEADACHE
     Route: 048
     Dates: start: 20150226, end: 20150501
  7. REBAMIPIDE [Concomitant]
     Active Substance: REBAMIPIDE
     Indication: ABDOMINAL DISCOMFORT
     Route: 048
     Dates: start: 20150226, end: 20150501

REACTIONS (7)
  - Abdominal discomfort [Recovering/Resolving]
  - Retinal haemorrhage [Recovered/Resolved]
  - White blood cell count decreased [Recovering/Resolving]
  - Haemoglobin decreased [Recovering/Resolving]
  - Headache [Recovering/Resolving]
  - Skin exfoliation [Recovering/Resolving]
  - Platelet count decreased [Recovering/Resolving]

NARRATIVE: CASE EVENT DATE: 20150309
